FAERS Safety Report 18326806 (Version 3)
Quarter: 2021Q3

REPORT INFORMATION
  Report Type: Report from Study
  Country: US (occurrence: US)
  Receive Date: 20200930
  Receipt Date: 20210706
  Transmission Date: 20211014
  Serious: No
  Sender: FDA-Public Use
  Company Number: NVSC2020US264560

PATIENT
  Sex: Female

DRUGS (2)
  1. ENTRESTO [Suspect]
     Active Substance: SACUBITRIL\VALSARTAN
     Dosage: 200 MG, BID(97/103MG)
     Route: 048
  2. ENTRESTO [Suspect]
     Active Substance: SACUBITRIL\VALSARTAN
     Indication: PRODUCT USED FOR UNKNOWN INDICATION
     Dosage: 100 MG, BID(49/51 MG)
     Route: 048

REACTIONS (3)
  - Inappropriate schedule of product administration [Unknown]
  - Intentional underdose [Unknown]
  - Pollakiuria [Unknown]
